FAERS Safety Report 6880324-9 (Version None)
Quarter: 2010Q3

REPORT INFORMATION
  Report Type: 
  Country: None (occurrence: None)
  Receive Date: 20100728
  Receipt Date: 20100715
  Transmission Date: 20110219
  Serious: Yes (Other)
  Sender: FDA-Public Use
  Company Number: BR-PFIZER INC-2010088493

PATIENT
  Age: 55 Year
  Sex: Female

DRUGS (1)
  1. DOSTINEX [Suspect]
     Indication: ADENOMA BENIGN
     Dosage: UNK
     Route: 048
     Dates: start: 20100601

REACTIONS (4)
  - BLOOD PROLACTIN INCREASED [None]
  - HEADACHE [None]
  - HYPERHIDROSIS [None]
  - MALAISE [None]
